FAERS Safety Report 10073548 (Version 2)
Quarter: 2014Q2

REPORT INFORMATION
  Report Type: Spontaneous
  Country: US (occurrence: US)
  Receive Date: 20140411
  Receipt Date: 20140429
  Transmission Date: 20141212
  Serious: Yes (Hospitalization)
  Sender: FDA-Public Use
  Company Number: US-JNJFOC-20140407867

PATIENT
  Sex: Male
  Weight: 89.3 kg

DRUGS (5)
  1. IMBRUVICA [Suspect]
     Indication: CHRONIC LYMPHOCYTIC LEUKAEMIA
     Route: 048
     Dates: start: 20140413
  2. IMBRUVICA [Suspect]
     Indication: CHRONIC LYMPHOCYTIC LEUKAEMIA
     Route: 048
     Dates: start: 20140228, end: 20140401
  3. PLAVIX [Suspect]
     Indication: CAROTID ARTERY STENOSIS
     Route: 048
  4. AMBIEN [Concomitant]
     Indication: POOR QUALITY SLEEP
  5. VITAMIN D [Concomitant]
     Indication: SUPPLEMENTATION THERAPY

REACTIONS (1)
  - Gastrointestinal haemorrhage [Recovered/Resolved]
